FAERS Safety Report 5020732-4 (Version None)
Quarter: 2006Q2

REPORT INFORMATION
  Report Type: 
  Country: None (occurrence: None)
  Receive Date: 20060601
  Receipt Date: 20060518
  Transmission Date: 20061013
  Serious: Yes (Other)
  Sender: FDA-Public Use
  Company Number: 14072

PATIENT
  Age: 74 Year
  Sex: Male
  Weight: 75 kg

DRUGS (3)
  1. PROPOFOL [Suspect]
     Indication: SENSORY DISTURBANCE
     Dates: start: 20060329
  2. FENTANYL TRANSDERMAL SYSTEM [Suspect]
  3. MIDAZOLAM HCL [Suspect]

REACTIONS (6)
  - BLISTER [None]
  - DISCOMFORT [None]
  - DRUG ERUPTION [None]
  - MALIGNANT MELANOMA [None]
  - PAIN [None]
  - PENILE SWELLING [None]
